FAERS Safety Report 18251443 (Version 1)
Quarter: 2020Q3

REPORT INFORMATION
  Report Type: Spontaneous
  Country: SE (occurrence: SE)
  Receive Date: 20200910
  Receipt Date: 20200910
  Transmission Date: 20201103
  Serious: Yes (Other)
  Sender: FDA-Public Use
  Company Number: SE-JNJFOC-20200908559

PATIENT
  Age: 39 Year
  Sex: Female
  Weight: 54 kg

DRUGS (1)
  1. IBUPROFEN. [Suspect]
     Active Substance: IBUPROFEN
     Indication: MYALGIA
     Route: 065
     Dates: start: 20190715, end: 20190723

REACTIONS (9)
  - Metabolic disorder [Recovered/Resolved with Sequelae]
  - Agitation [Recovered/Resolved with Sequelae]
  - Abdominal pain [Recovered/Resolved with Sequelae]
  - Myalgia [Recovered/Resolved with Sequelae]
  - Muscle twitching [Recovered/Resolved with Sequelae]
  - Balance disorder [Recovered/Resolved with Sequelae]
  - Dizziness [Recovered/Resolved with Sequelae]
  - Hypothyroidism [Recovered/Resolved with Sequelae]
  - Insomnia [Recovered/Resolved with Sequelae]

NARRATIVE: CASE EVENT DATE: 20190722
